FAERS Safety Report 15595713 (Version 2)
Quarter: 2018Q4

REPORT INFORMATION
  Report Type: Spontaneous
  Country: FI (occurrence: FI)
  Receive Date: 20181107
  Receipt Date: 20181126
  Transmission Date: 20190205
  Serious: No
  Sender: FDA-Public Use
  Company Number: FI-BIOGEN-2018BI00655080

PATIENT
  Age: 36 Year
  Sex: Female

DRUGS (1)
  1. TYSABRI [Suspect]
     Active Substance: NATALIZUMAB
     Indication: MULTIPLE SCLEROSIS
     Dosage: INFUSED OVER 1 HOUR
     Route: 042
     Dates: start: 20170710, end: 20180202

REACTIONS (3)
  - Breech presentation [Recovered/Resolved]
  - Maternal exposure during pregnancy [Recovered/Resolved]
  - Anxiety [Unknown]
